FAERS Safety Report 25576604 (Version 1)
Quarter: 2025Q3

REPORT INFORMATION
  Report Type: Spontaneous
  Country: US (occurrence: US)
  Receive Date: 20250718
  Receipt Date: 20250718
  Transmission Date: 20251021
  Serious: No
  Sender: ROCHE
  Company Number: US-ROCHE-10000334385

PATIENT
  Sex: Female

DRUGS (1)
  1. ACTEMRA [Suspect]
     Active Substance: TOCILIZUMAB
     Indication: Product used for unknown indication
     Route: 058
     Dates: start: 202506

REACTIONS (7)
  - Ear pain [Unknown]
  - Oropharyngeal pain [Unknown]
  - Lower respiratory tract congestion [Unknown]
  - Diarrhoea [Unknown]
  - Productive cough [Unknown]
  - Nasopharyngitis [Unknown]
  - Product quality issue [Unknown]
